FAERS Safety Report 7192279-0 (Version None)
Quarter: 2010Q4

REPORT INFORMATION
  Report Type: 
  Country: None (occurrence: None)
  Receive Date: 20101223
  Receipt Date: 20100823
  Transmission Date: 20110411
  Serious: No
  Sender: FDA-Public Use
  Company Number: US-AMGEN-KDL433422

PATIENT

DRUGS (2)
  1. ENBREL [Suspect]
     Indication: PSORIATIC ARTHROPATHY
     Dosage: 50 MG, QWK
     Route: 058
  2. ENBREL [Suspect]
     Indication: PSORIASIS

REACTIONS (8)
  - BLOOD PRESSURE INCREASED [None]
  - BRONCHITIS [None]
  - FLUSHING [None]
  - INCORRECT STORAGE OF DRUG [None]
  - INFECTION [None]
  - PSORIATIC ARTHROPATHY [None]
  - STAPHYLOCOCCAL INFECTION [None]
  - VOMITING [None]
